FAERS Safety Report 23535418 (Version 6)
Quarter: 2025Q3

REPORT INFORMATION
  Report Type: Report from Study
  Country: EU (occurrence: EU)
  Receive Date: 20240218
  Receipt Date: 20250810
  Transmission Date: 20251021
  Serious: Yes (Other)
  Sender: ALEXION PHARMACEUTICALS
  Company Number: 2020SE98958

PATIENT
  Sex: Female
  Weight: 70.5 kg

DRUGS (6)
  1. FULVESTRANT [Suspect]
     Active Substance: FULVESTRANT
     Indication: Breast cancer metastatic
     Dosage: 500 MG, QD (EVERY TWO WEEKS)
     Dates: start: 20200417, end: 20200515
  2. FULVESTRANT [Suspect]
     Active Substance: FULVESTRANT
     Dosage: 500 MG, QD (MONTHLY)
     Dates: start: 20200610, end: 20220323
  3. KISQALI [Suspect]
     Active Substance: RIBOCICLIB SUCCINATE
     Indication: Breast cancer metastatic
     Dosage: 600 MG, QD (SCHEMA 21 DAYS INTAKE, 7 DAYS PAUSE)
     Dates: start: 20200420, end: 20201004
  4. KISQALI [Suspect]
     Active Substance: RIBOCICLIB SUCCINATE
     Indication: Hormone receptor positive HER2 negative breast cancer
     Dosage: 400 MG, QD (SCHEMA 21 DAYS INTAKE, 7 DAYS PAUSE)
     Dates: start: 20201005, end: 20220107
  5. KISQALI [Suspect]
     Active Substance: RIBOCICLIB SUCCINATE
     Indication: Breast cancer metastatic
     Dosage: 200 MILLIGRAM, QD
     Route: 065
     Dates: start: 20220228, end: 20220325
  6. KISQALI [Suspect]
     Active Substance: RIBOCICLIB SUCCINATE
     Indication: Breast cancer metastatic
     Route: 065

REACTIONS (2)
  - Urinary tract infection [Recovered/Resolved]
  - Urinary retention [Recovered/Resolved]

NARRATIVE: CASE EVENT DATE: 20200701
